FAERS Safety Report 5723209-3 (Version None)
Quarter: 2008Q2

REPORT INFORMATION
  Report Type: 
  Country: None (occurrence: None)
  Receive Date: 20080425
  Receipt Date: 20080417
  Transmission Date: 20081010
  Serious: Yes (Hospitalization, Other)
  Sender: FDA-Public Use
  Company Number: 2008SP007333

PATIENT
  Age: 51 Year
  Sex: Female

DRUGS (15)
  1. NOXAFIL [Suspect]
     Indication: PROPHYLAXIS
     Dosage: 5 ML;TID;PO
     Route: 048
     Dates: start: 20080106, end: 20080416
  2. TOPOTECAN [Concomitant]
  3. VINORELBINE [Concomitant]
  4. THIOTEPA [Concomitant]
  5. GEMZITABINE [Concomitant]
  6. DEXA [Concomitant]
  7. DEXATON /000162002/ [Concomitant]
  8. MERONEM [Concomitant]
  9. DENTRON (ONDANSETRON) [Concomitant]
  10. LOSEC I.V. [Concomitant]
  11. CYMEVEN [Concomitant]
  12. DUPHALAC [Concomitant]
  13. GRANOCYTE [Concomitant]
  14. ALBUMIN (HUMAN) [Concomitant]
  15. BACTRIMEL [Concomitant]

REACTIONS (1)
  - BRADYCARDIA [None]
